FAERS Safety Report 5211605-2 (Version None)
Quarter: 2007Q1

REPORT INFORMATION
  Report Type: 
  Country: None (occurrence: None)
  Receive Date: 20070118
  Receipt Date: 20070111
  Transmission Date: 20070707
  Serious: Yes (Death, Other)
  Sender: FDA-Public Use
  Company Number: GB-JNJFOC-20070103112

PATIENT
  Age: 28 Year
  Sex: Female

DRUGS (9)
  1. HALOPERIDOL [Suspect]
     Indication: DEPRESSION
     Route: 048
  2. CITALOPRAM HYDROBROMIDE [Suspect]
     Indication: DEPRESSION
     Route: 048
  3. CLOZARIL [Suspect]
     Indication: SCHIZOPHRENIA
     Route: 048
  4. LITHIUM CARBONATE [Suspect]
     Indication: DEPRESSION
     Route: 048
  5. DIAZEPAM [Concomitant]
     Indication: ANXIETY
     Route: 048
  6. LACTULOSE [Concomitant]
     Route: 065
  7. LEVOTHYROXINE SODIUM [Concomitant]
     Indication: HYPOTHYROIDISM
     Route: 048
  8. PIRENZEPINE [Concomitant]
     Indication: SALIVARY HYPERSECRETION
     Route: 048
  9. SENNA [Concomitant]
     Route: 065

REACTIONS (3)
  - MYOCARDIAL INFARCTION [None]
  - NEUTROPHIL COUNT INCREASED [None]
  - WHITE BLOOD CELL COUNT INCREASED [None]
